FAERS Safety Report 21280508 (Version 1)
Quarter: 2022Q3

REPORT INFORMATION
  Report Type: Spontaneous
  Country: US (occurrence: None)
  Receive Date: 20220901
  Receipt Date: 20220901
  Transmission Date: 20221027
  Serious: Yes (Other)
  Sender: FDA-Public Use
  Company Number: None

PATIENT
  Sex: Male
  Weight: 79.65 kg

DRUGS (8)
  1. XTANDI [Suspect]
     Active Substance: ENZALUTAMIDE
     Indication: Prostate cancer
     Dosage: FREQUENCY : DAILY;?
     Route: 048
     Dates: start: 20210202
  2. FUROSEMIDE [Concomitant]
     Active Substance: FUROSEMIDE
  3. IRBESARTAN [Concomitant]
     Active Substance: IRBESARTAN
  4. Lupron 30 mg 4 month injection [Concomitant]
  5. METOPROLOL [Concomitant]
     Active Substance: METOPROLOL
  6. nortriptyline 50 mg [Concomitant]
  7. WARFARIN [Concomitant]
     Active Substance: WARFARIN
  8. WELLBUTRIN SR [Concomitant]
     Active Substance: BUPROPION HYDROCHLORIDE

REACTIONS (2)
  - Blood glucose increased [None]
  - Prostatic specific antigen increased [None]
